FAERS Safety Report 8271010 (Version 2)
Quarter: 2013Q4

REPORT INFORMATION
  Report Type: Spontaneous
  Country: FR (occurrence: FR)
  Receive Date: 20111201
  Receipt Date: 20131007
  Transmission Date: 20140711
  Serious: Yes (Hospitalization)
  Sender: FDA-Public Use
  Company Number: FR-SANOFI-AVENTIS-2011SA077829

PATIENT
  Age: 64 Year
  Sex: Male

DRUGS (6)
  1. ARAVA [Suspect]
     Indication: RHEUMATOID ARTHRITIS
     Route: 048
     Dates: start: 20110803, end: 20111103
  2. PLAVIX [Concomitant]
     Route: 048
  3. KARDEGIC [Concomitant]
  4. CORTANCYL [Concomitant]
  5. TAHOR [Concomitant]
  6. TRIATEC [Concomitant]

REACTIONS (2)
  - Posterior reversible encephalopathy syndrome [Recovered/Resolved]
  - Convulsion [Recovered/Resolved]
